FAERS Safety Report 6925606-7 (Version None)
Quarter: 2010Q3

REPORT INFORMATION
  Report Type: 
  Country: None (occurrence: None)
  Receive Date: 20100813
  Receipt Date: 20100813
  Transmission Date: 20110219
  Serious: Yes (Hospitalization)
  Sender: FDA-Public Use
  Company Number: None

PATIENT
  Sex: Female
  Weight: 71.7 kg

DRUGS (2)
  1. CISPLATIN [Suspect]
     Dosage: 54 MG
     Dates: end: 20100720
  2. ERBITUX [Suspect]
     Dosage: 450 MG
     Dates: end: 20100720

REACTIONS (7)
  - ABDOMINAL PAIN [None]
  - BLOOD POTASSIUM DECREASED [None]
  - DIARRHOEA [None]
  - DIZZINESS [None]
  - DRUG TOXICITY [None]
  - NAUSEA [None]
  - WHITE BLOOD CELL COUNT DECREASED [None]
